FAERS Safety Report 8465897-7 (Version None)
Quarter: 2012Q2

REPORT INFORMATION
  Report Type: 
  Country: None (occurrence: None)
  Receive Date: 20120626
  Receipt Date: 20120621
  Transmission Date: 20120825
  Serious: Yes (Hospitalization)
  Sender: FDA-Public Use
  Company Number: CZ-PFIZER INC-2012149911

PATIENT
  Age: 65 Year
  Sex: Male

DRUGS (3)
  1. METFFORMIN HYDROCHLORIDE [Suspect]
     Indication: TYPE 2 DIABETES MELLITUS
     Dosage: 1500 MG, UNK
     Dates: end: 20120330
  2. BLINDED THERAPY [Suspect]
     Indication: TYPE 2 DIABETES MELLITUS
     Dosage: SAXAGLIPTIN/PLACEBO
     Dates: start: 20101027
  3. MEDROL [Suspect]
     Indication: SARCOIDOSIS
     Dosage: UNK

REACTIONS (6)
  - MYOCARDIAL ISCHAEMIA [None]
  - CHOLELITHIASIS [None]
  - PANCREATITIS [None]
  - SUPRAVENTRICULAR TACHYCARDIA [None]
  - PNEUMONIA [None]
  - HYPERGLYCAEMIA [None]
